FAERS Safety Report 5109915-2 (Version None)
Quarter: 2006Q3

REPORT INFORMATION
  Report Type: 
  Country: None (occurrence: None)
  Receive Date: 20060921
  Receipt Date: 20060718
  Transmission Date: 20061208
  Serious: Yes (Death, Hospitalization, Other)
  Sender: FDA-Public Use
  Company Number: US-BRISTOL-MYERS SQUIBB COMPANY-13454582

PATIENT
  Age: 67 Year
  Sex: Male

DRUGS (9)
  1. PERCOCET [Suspect]
     Indication: MUSCULOSKELETAL CHEST PAIN
     Dosage: 09/21/03-2;09/22/03-6(2 AT ONCE,THEN 1 QID;09/23/03-9 TABLETS;09/24/03-10;09/25/03-6; 09/26/03-1.
     Route: 048
     Dates: start: 20030921, end: 20030925
  2. PRAVACHOL [Suspect]
     Indication: HYPERCHOLESTEROLAEMIA
     Dates: end: 20031110
  3. LORTAB-7 [Suspect]
     Indication: MUSCULOSKELETAL CHEST PAIN
     Dosage: LORTAB-7- 5 TABLETS ON 09/26/03 AND 4 TABLETS ON 09/27/03.
     Route: 048
     Dates: start: 20030926, end: 20030927
  4. ZOCOR [Suspect]
     Indication: HYPERCHOLESTEROLAEMIA
     Route: 048
     Dates: start: 20031110
  5. ALCOHOL [Suspect]
     Route: 048
  6. ATENOLOL [Concomitant]
     Indication: HYPERTENSION
     Route: 048
  7. ZOCOR [Concomitant]
     Dates: start: 20031110
  8. ENALAPRIL [Concomitant]
     Indication: HYPERTENSION
     Route: 048
  9. POTASSIUM CHLORIDE [Concomitant]
     Indication: HYPOKALAEMIA
     Route: 048

REACTIONS (5)
  - ABDOMINAL DISTENSION [None]
  - BLOOD ALKALINE PHOSPHATASE INCREASED [None]
  - BLOOD BILIRUBIN INCREASED [None]
  - HEPATIC FAILURE [None]
  - HEPATITIS C POSITIVE [None]
